FAERS Safety Report 8685749 (Version 5)
Quarter: 2013Q1

REPORT INFORMATION
  Report Type: Spontaneous
  Country: US (occurrence: US)
  Receive Date: 20120726
  Receipt Date: 20130109
  Transmission Date: 20140127
  Serious: Yes (Hospitalization)
  Sender: FDA-Public Use
  Company Number: US-GLAXOSMITHKLINE-A0986984A

PATIENT
  Age: 48 Year
  Sex: Female

DRUGS (2)
  1. FLOLAN [Suspect]
     Indication: PRODUCT USED FOR UNKNOWN INDICATION
     Dosage: 30NGKM CONTINUOUS
     Route: 042
     Dates: start: 20100429
  2. LETAIRIS [Concomitant]

REACTIONS (4)
  - Pneumothorax [Recovered/Resolved]
  - Chronic respiratory failure [Recovered/Resolved]
  - Diarrhoea [Recovered/Resolved]
  - Pain in jaw [Recovered/Resolved]
